FAERS Safety Report 20493172 (Version 1)
Quarter: 2022Q1

REPORT INFORMATION
  Report Type: Spontaneous
  Country: LT (occurrence: LT)
  Receive Date: 20220220
  Receipt Date: 20220220
  Transmission Date: 20220423
  Serious: Yes (Hospitalization)
  Sender: FDA-Public Use
  Company Number: None

PATIENT
  Age: 41 Year
  Sex: Male
  Weight: 80 kg

DRUGS (2)
  1. ZOLPIDEM [Suspect]
     Active Substance: ZOLPIDEM TARTRATE
     Indication: Product use in unapproved indication
     Dosage: 40 DOSAGE FORM, QD (40 TABLETS OF 10 MG)
     Route: 048
     Dates: start: 20220124
  2. QUETIAPINE [Concomitant]
     Active Substance: QUETIAPINE
     Indication: Anxiety
     Dosage: 200 MG
     Route: 048
     Dates: start: 20220124, end: 20220204

REACTIONS (3)
  - Somnolence [Recovered/Resolved]
  - Suicide attempt [Recovered/Resolved]
  - Intentional overdose [Recovered/Resolved]

NARRATIVE: CASE EVENT DATE: 20220124
